FAERS Safety Report 5463520-7 (Version None)
Quarter: 2007Q3

REPORT INFORMATION
  Report Type: 
  Country: None (occurrence: None)
  Receive Date: 20070919
  Receipt Date: 20070905
  Transmission Date: 20080115
  Serious: Yes (Hospitalization, Other)
  Sender: FDA-Public Use
  Company Number: WAES 0701USA03227

PATIENT
  Age: 62 Year
  Sex: Male

DRUGS (10)
  1. DECADRON [Suspect]
     Indication: PROPHYLAXIS
     Dosage: 4 MG/BID/PO
     Route: 048
     Dates: start: 20070112, end: 20070114
  2. DECADRON [Suspect]
     Indication: PREMEDICATION
     Dosage: 10 MG/1X/IV
     Route: 042
     Dates: start: 20070111, end: 20070111
  3. CDDP UNK [Suspect]
     Indication: METASTATIC GASTRIC CANCER
     Dosage: 170 MG/IV
     Route: 042
     Dates: start: 20070111, end: 20070111
  4. FLUOROURACIL [Suspect]
     Indication: METASTATIC GASTRIC CANCER
     Dosage: 1780 MG/DAILY/IV
     Route: 042
     Dates: start: 20070111, end: 20070115
  5. COMPAZINE [Concomitant]
  6. EMEND [Concomitant]
  7. ZOFRAN [Concomitant]
  8. HYDROCODONE BITARTRATE [Concomitant]
  9. LORAZEPAM [Concomitant]
  10. ONDANSETRON [Concomitant]

REACTIONS (36)
  - ABDOMINAL PAIN [None]
  - ALANINE AMINOTRANSFERASE INCREASED [None]
  - ANOREXIA [None]
  - ASTHENIA [None]
  - ATELECTASIS [None]
  - BETA HAEMOLYTIC STREPTOCOCCAL INFECTION [None]
  - BLOOD ALKALINE PHOSPHATASE INCREASED [None]
  - CONSTIPATION [None]
  - DEPRESSION [None]
  - DIARRHOEA [None]
  - FEBRILE NEUTROPENIA [None]
  - FUNGAL INFECTION [None]
  - GLUCOSE TOLERANCE IMPAIRED [None]
  - HAEMATOCRIT DECREASED [None]
  - HYPERBILIRUBINAEMIA [None]
  - HYPERCHOLESTEROLAEMIA [None]
  - HYPERGLYCAEMIA [None]
  - HYPONATRAEMIA [None]
  - JAUNDICE [None]
  - JAUNDICE CHOLESTATIC [None]
  - LOBAR PNEUMONIA [None]
  - LUNG CONSOLIDATION [None]
  - METABOLIC ACIDOSIS [None]
  - METASTASES TO LIVER [None]
  - METASTATIC GASTRIC CANCER [None]
  - MUCOSAL INFLAMMATION [None]
  - NAUSEA [None]
  - NEUTROPENIA [None]
  - NEUTROPHIL PERCENTAGE DECREASED [None]
  - ODYNOPHAGIA [None]
  - OESOPHAGITIS [None]
  - PAIN [None]
  - PLEURAL EFFUSION [None]
  - RENAL FAILURE [None]
  - VOMITING [None]
  - WHITE BLOOD CELL COUNT DECREASED [None]
